FAERS Safety Report 4964959-6 (Version None)
Quarter: 2006Q2

REPORT INFORMATION
  Report Type: 
  Country: None (occurrence: None)
  Receive Date: 20060403
  Receipt Date: 20060324
  Transmission Date: 20061013
  Serious: Yes (Hospitalization)
  Sender: FDA-Public Use
  Company Number: 2006-03-1727

PATIENT
  Age: 63 Year
  Sex: Male

DRUGS (4)
  1. PEG-INTRON [Suspect]
     Indication: HEPATITIS C
     Dosage: 100 MCG QW SUBCUTANEOUS
     Route: 058
     Dates: start: 20060208, end: 20060308
  2. REBETOL [Suspect]
     Indication: HEPATITIS C
     Dosage: 800 MG ORAL
     Route: 048
     Dates: start: 20060208, end: 20060312
  3. AMARYL [Concomitant]
  4. JUZENDAIHOTO ORAL POWDER [Concomitant]

REACTIONS (3)
  - CEREBRAL INFARCTION [None]
  - HYPOAESTHESIA [None]
  - SPEECH DISORDER [None]
